FAERS Safety Report 10181582 (Version 2)
Quarter: 2014Q2

REPORT INFORMATION
  Report Type: Spontaneous
  Country: JP (occurrence: JP)
  Receive Date: 20140519
  Receipt Date: 20140602
  Transmission Date: 20141212
  Serious: Yes (Disabling)
  Sender: FDA-Public Use
  Company Number: JP-GLAXOSMITHKLINE-B0994498A

PATIENT
  Age: 62 Year
  Sex: Female

DRUGS (6)
  1. REVOLADE [Suspect]
     Indication: IMMUNE THROMBOCYTOPENIC PURPURA
     Dosage: 25MG PER DAY
     Route: 048
     Dates: start: 20131217
  2. PREDONINE [Concomitant]
     Indication: IMMUNE THROMBOCYTOPENIC PURPURA
     Dosage: 5MG PER DAY
     Route: 048
     Dates: start: 1986
  3. HALCION [Concomitant]
     Indication: INSOMNIA
     Dosage: .25MG PER DAY
     Route: 048
  4. TAKEPRON [Concomitant]
     Indication: GASTRITIS
     Dosage: 15MG PER DAY
     Route: 048
  5. LIVALO [Concomitant]
     Indication: HYPERCHOLESTEROLAEMIA
     Dosage: 1MG PER DAY
     Route: 048
  6. DEPAS [Concomitant]
     Indication: INSOMNIA
     Dosage: .5MG PER DAY
     Route: 048

REACTIONS (4)
  - Retinal detachment [Not Recovered/Not Resolved]
  - Retinal tear [Not Recovered/Not Resolved]
  - Cataract [Not Recovered/Not Resolved]
  - Headache [Recovering/Resolving]
